FAERS Safety Report 21589079 (Version 1)
Quarter: 2022Q4

REPORT INFORMATION
  Report Type: Spontaneous
  Country: US (occurrence: None)
  Receive Date: 20221111
  Receipt Date: 20221111
  Transmission Date: 20230112
  Serious: Yes (Hospitalization)
  Sender: FDA-Public Use
  Company Number: None

PATIENT
  Sex: Female

DRUGS (2)
  1. MYCOPHENOLATE MOFETIL [Suspect]
     Active Substance: MYCOPHENOLATE MOFETIL
     Indication: Systemic scleroderma
     Dosage: TAKE 5ML (1000MG TOTAL) BY MOUTH TWICE DAILY?
     Route: 048
     Dates: start: 20220916
  2. OFEV [Concomitant]

REACTIONS (1)
  - Respiratory disorder [None]
